FAERS Safety Report 8677822 (Version 2)
Quarter: 2012Q4

REPORT INFORMATION
  Report Type: 
  Country: US (occurrence: US)
  Receive Date: 20120723
  Receipt Date: 20121010
  Transmission Date: 20130627
  Serious: Yes (Disabling, Other)
  Sender: FDA-Public Use
  Company Number: US-009507513-1111USA02611

PATIENT

DRUGS (6)
  1. FOSAMAX [Suspect]
     Indication: OSTEOPENIA
     Dosage: 20 mg, UNK
     Route: 048
     Dates: start: 20050319
  2. FOSAMAX [Suspect]
     Dosage: 70 mg, QW
     Route: 048
     Dates: start: 20050504, end: 20060402
  3. FOSAMAX D [Suspect]
     Indication: OSTEOPENIA
     Dosage: 70/2800
     Route: 048
     Dates: start: 20060621, end: 20090125
  4. FOSAMAX [Suspect]
     Indication: OSTEOPENIA
     Dosage: 70 mg, UNK
     Route: 048
     Dates: start: 20090617, end: 20100218
  5. BONIVA [Suspect]
     Route: 048
  6. XANAX [Concomitant]
     Indication: ANXIETY
     Dosage: UNK
     Dates: start: 200103, end: 201010

REACTIONS (28)
  - Osteonecrosis of jaw [Not Recovered/Not Resolved]
  - Depression [Unknown]
  - Anxiety [Unknown]
  - Exostosis of jaw [Unknown]
  - Tooth disorder [Unknown]
  - Tooth fracture [Unknown]
  - Lip neoplasm benign [Unknown]
  - Fibroma [Unknown]
  - Bone disorder [Unknown]
  - Migraine [Unknown]
  - Impaired healing [Not Recovered/Not Resolved]
  - Infection [Unknown]
  - Rectal haemorrhage [Unknown]
  - Bunion [Unknown]
  - Synovial cyst [Unknown]
  - Memory impairment [Unknown]
  - Hypercholesterolaemia [Unknown]
  - Vitamin D deficiency [Unknown]
  - Wrong technique in drug usage process [Unknown]
  - Osteoporosis [Unknown]
  - Breast mass [Unknown]
  - Oral disorder [Unknown]
  - Gastrointestinal pain [Recovered/Resolved]
  - Abnormal faeces [Recovered/Resolved]
  - Tooth discolouration [Unknown]
  - Tooth deposit [Unknown]
  - Constipation [Unknown]
  - Mouth ulceration [Unknown]
